FAERS Safety Report 9805303 (Version 1)
Quarter: 2014Q1

REPORT INFORMATION
  Report Type: Spontaneous
  Country: TR (occurrence: None)
  Receive Date: 20140106
  Receipt Date: 20140106
  Transmission Date: 20141002
  Serious: Yes (Other)
  Sender: FDA-Public Use
  Company Number: FK201400003

PATIENT
  Age: 64 Year
  Sex: Male

DRUGS (3)
  1. CYTARABINE (MANUFACTURER UNKNOWN)(CYTARABINE)(CYTARABINE) [Suspect]
     Indication: HODGKIN^S DISEASE
     Dosage: 2 G/M212 HOURS
  2. CISPLATIN (CISPLATIN) [Concomitant]
  3. DEXAMETHASONE (DEXAMETHASONE) [Concomitant]

REACTIONS (1)
  - Sinus bradycardia [None]
